FAERS Safety Report 18885919 (Version 1)
Quarter: 2021Q1

REPORT INFORMATION
  Report Type: Spontaneous
  Country: US (occurrence: US)
  Receive Date: 20210212
  Receipt Date: 20210212
  Transmission Date: 20210420
  Serious: Yes (Other)
  Sender: FDA-Public Use
  Company Number: None

PATIENT
  Age: 69 Year
  Sex: Female
  Weight: 104.1 kg

DRUGS (12)
  1. ROCURONIUM 50 MG IV X 1 [Concomitant]
     Dates: start: 20210211, end: 20210211
  2. VASOPRESSIN/NS 40UNITS/100ML IV @ 0.04 UNITS/MIN [Concomitant]
     Dates: start: 20210211
  3. DEXAMETHASONE 10 MG IV DAILY [Concomitant]
     Dates: start: 20210211
  4. FENTANYL 2500 MCG/50 ML IV TITRATED [Concomitant]
     Dates: start: 20210211
  5. ACETAMINOPHEN 650 MG PR X 1 [Concomitant]
     Dates: start: 20210211, end: 20210211
  6. NOREPINEPHRINE/NS 8MG/250ML IV TITRATED [Concomitant]
     Dates: start: 20210211, end: 20210211
  7. FENTANYL 50 MCG IV X 1 [Concomitant]
     Dates: start: 20210211, end: 20210211
  8. MIDAZOLAM 2 MG IV X 1 [Concomitant]
     Dates: start: 20210211, end: 20210211
  9. FAMOTIDINE 20 MG IV DAILY [Concomitant]
     Dates: start: 20210211
  10. CALCIUM GLUCONATE 1 GM X 1 [Concomitant]
     Dates: start: 20210212, end: 20210212
  11. VEKLURY [Suspect]
     Active Substance: REMDESIVIR
     Indication: COVID-19 PNEUMONIA
     Route: 042
     Dates: start: 20210211, end: 20210212
  12. PHENYLEPHRINE/NS 200MG/250ML IV TITRATED [Concomitant]
     Dates: start: 20210211, end: 20210212

REACTIONS (1)
  - Laboratory test abnormal [None]

NARRATIVE: CASE EVENT DATE: 20210212
